FAERS Safety Report 17639605 (Version 1)
Quarter: 2020Q2

REPORT INFORMATION
  Report Type: Spontaneous
  Country: US (occurrence: US)
  Receive Date: 20200407
  Receipt Date: 20200407
  Transmission Date: 20200713
  Serious: Yes (Other)
  Sender: FDA-Public Use
  Company Number: US-GILEAD-2020-0456932

PATIENT
  Age: 29 Year
  Sex: Female

DRUGS (57)
  1. ATAZANAVIR. [Concomitant]
     Active Substance: ATAZANAVIR
  2. DICLOXACILLIN [Concomitant]
     Active Substance: DICLOXACILLIN
  3. CLEOCIN S [Concomitant]
  4. METRONIDAZOLE. [Concomitant]
     Active Substance: METRONIDAZOLE
  5. IBUPROFEN. [Concomitant]
     Active Substance: IBUPROFEN
  6. REYATAZ [Concomitant]
     Active Substance: ATAZANAVIR SULFATE
  7. PANTOPRAZOLE [Concomitant]
     Active Substance: PANTOPRAZOLE
  8. SILVER SULFADIAZINE. [Concomitant]
     Active Substance: SILVER SULFADIAZINE
  9. ATRIPLA [Suspect]
     Active Substance: EFAVIRENZ\EMTRICITABINE\TENOFOVIR DISOPROXIL FUMARATE
     Indication: HIV INFECTION
     Dosage: 1 DOSAGE FORM, QD
     Route: 048
     Dates: start: 201001, end: 201801
  10. RITONAVIR. [Concomitant]
     Active Substance: RITONAVIR
  11. BACTRIM [Concomitant]
     Active Substance: SULFAMETHOXAZOLE\TRIMETHOPRIM
  12. MULTI VIT [Concomitant]
     Active Substance: VITAMINS
  13. NITROFURANTOIN. [Concomitant]
     Active Substance: NITROFURANTOIN
  14. NORVIR [Concomitant]
     Active Substance: RITONAVIR
  15. CLOBETASOL [Concomitant]
     Active Substance: CLOBETASOL
  16. PRENATAL VITAMINS [MINERALS NOS;VITAMINS NOS] [Concomitant]
     Active Substance: MINERALS\VITAMINS
  17. FERROUS SULFATE. [Concomitant]
     Active Substance: FERROUS SULFATE
  18. CLINDAMYCIN. [Concomitant]
     Active Substance: CLINDAMYCIN
  19. PERCOCET [OXYCODONE HYDROCHLORIDE;OXYCODONE TEREPHTHALATE;PARACETAMOL] [Concomitant]
     Active Substance: ACETAMINOPHEN\OXYCODONE HYDROCHLORIDE\OXYCODONE TEREPHTHALATE
  20. ECONAZOLE. [Concomitant]
     Active Substance: ECONAZOLE NITRATE
  21. ALPRAZOLAM. [Concomitant]
     Active Substance: ALPRAZOLAM
  22. JUNEL [Concomitant]
     Active Substance: ETHINYL ESTRADIOL\NORETHINDRONE ACETATE
  23. TRIUMEQ [Concomitant]
     Active Substance: ABACAVIR SULFATE\DOLUTEGRAVIR SODIUM\LAMIVUDINE
  24. HYDROMORPHONE [Concomitant]
     Active Substance: HYDROMORPHONE
  25. TRUVADA [Suspect]
     Active Substance: EMTRICITABINE\TENOFOVIR DISOPROXIL FUMARATE
     Indication: HIV INFECTION
     Dosage: 1 DOSAGE FORM, QD
     Route: 048
     Dates: start: 200409, end: 201001
  26. KEFLEX [Concomitant]
     Active Substance: CEPHALEXIN
  27. FLUCONAZOLE. [Concomitant]
     Active Substance: FLUCONAZOLE
  28. CEFUROXIME. [Concomitant]
     Active Substance: CEFUROXIME
  29. CITALOPRAM [Concomitant]
     Active Substance: CITALOPRAM HYDROBROMIDE
  30. IMIQUIMOD. [Concomitant]
     Active Substance: IMIQUIMOD
  31. VIREAD [Suspect]
     Active Substance: TENOFOVIR DISOPROXIL FUMARATE
     Indication: HIV INFECTION
     Dosage: UNK
     Route: 065
     Dates: start: 200111, end: 200401
  32. DESCOVY [Concomitant]
     Active Substance: EMTRICITABINE\TENOFOVIR ALAFENAMIDE FUMARATE
  33. ZOFRAN [Concomitant]
     Active Substance: ONDANSETRON HYDROCHLORIDE
  34. TIVICAY [Concomitant]
     Active Substance: DOLUTEGRAVIR SODIUM
  35. MONUROL [Concomitant]
     Active Substance: FOSFOMYCIN TROMETHAMINE
  36. NORTRIPTYLINE [Concomitant]
     Active Substance: NORTRIPTYLINE
  37. DOCQLACE [Concomitant]
     Active Substance: DOCUSATE SODIUM
  38. LEVAQUIN [Concomitant]
     Active Substance: LEVOFLOXACIN
  39. MEDROXYPROGESTERONE [Concomitant]
     Active Substance: MEDROXYPROGESTERONE
  40. CHLORHEXIDINE HCL [Concomitant]
  41. PODOFILOX. [Concomitant]
     Active Substance: PODOFILOX
  42. AMOX+AC CLAV ACV [Concomitant]
  43. ENOXAPARIN [Concomitant]
     Active Substance: ENOXAPARIN
  44. LORATADINE. [Concomitant]
     Active Substance: LORATADINE
  45. POLYETHYLENE GLYCOL [Concomitant]
     Active Substance: POLYETHYLENE GLYCOLS
  46. VALACYCLOVIR HCL [Concomitant]
     Active Substance: VALACYCLOVIR HYDROCHLORIDE
  47. SENNA LAXATIVE [Concomitant]
     Active Substance: SENNOSIDES
  48. BIKTARVY [Concomitant]
     Active Substance: BICTEGRAVIR SODIUM\EMTRICITABINE\TENOFOVIR ALAFENAMIDE FUMARATE
  49. MUPIROCIN. [Concomitant]
     Active Substance: MUPIROCIN
  50. AZITHROMYCIN ANHYDROUS. [Concomitant]
     Active Substance: AZITHROMYCIN ANHYDROUS
  51. MORPHINE [Concomitant]
     Active Substance: MORPHINE
  52. SULFAMETHOXAZOLE [Concomitant]
     Active Substance: SULFAMETHOXAZOLE
  53. TRAMADOL. [Concomitant]
     Active Substance: TRAMADOL
  54. ASPIRIN (E.C.) [Concomitant]
     Active Substance: ASPIRIN
  55. CEPHALEXIN AMEL [Concomitant]
     Active Substance: CEPHALEXIN
  56. GABAPENTIN. [Concomitant]
     Active Substance: GABAPENTIN
  57. ACYCLOVIR ABBOTT VIAL [Concomitant]

REACTIONS (3)
  - Osteonecrosis [Not Recovered/Not Resolved]
  - Tooth loss [Not Recovered/Not Resolved]
  - Bone density decreased [Not Recovered/Not Resolved]

NARRATIVE: CASE EVENT DATE: 201101
